FAERS Safety Report 5225485-2 (Version None)
Quarter: 2007Q1

REPORT INFORMATION
  Report Type: 
  Country: None (occurrence: None)
  Receive Date: 20061201
  Receipt Date: 20060824
  Transmission Date: 20070707
  Serious: No
  Sender: FDA-Public Use
  Company Number: US200608005319

PATIENT
  Age: 73 Year
  Sex: Female

DRUGS (2)
  1. CYMBALTA [Suspect]
     Indication: DEPRESSION
     Dosage: 30 MG, ORAL
     Route: 048
     Dates: start: 20060601, end: 20060601
  2. THYROLAR (LEVOTHYROXINE SODIUM, LIOTHYRONINE SODIUM) [Concomitant]

REACTIONS (3)
  - ABNORMAL DREAMS [None]
  - FALL [None]
  - JOINT INJURY [None]
